FAERS Safety Report 11533539 (Version 1)
Quarter: 2015Q3

REPORT INFORMATION
  Report Type: Spontaneous
  Country: US (occurrence: US)
  Receive Date: 20150921
  Receipt Date: 20150921
  Transmission Date: 20151125
  Serious: No
  Sender: FDA-Public Use
  Company Number: US-SIGMA-TAU US-2014STPI000453

PATIENT

DRUGS (1)
  1. MATULANE [Suspect]
     Active Substance: PROCARBAZINE HYDROCHLORIDE
     Indication: LYMPHOMA
     Dosage: 100 MG, QD DAYS 1 TO 10 EVERY 28 DAYS
     Route: 048
     Dates: start: 20140813, end: 20140916

REACTIONS (1)
  - Heart rate irregular [Unknown]
